FAERS Safety Report 9841966 (Version 1)
Quarter: 2014Q1

REPORT INFORMATION
  Report Type: Spontaneous
  Country: US (occurrence: US)
  Receive Date: 20140124
  Receipt Date: 20140124
  Transmission Date: 20141002
  Serious: No
  Sender: FDA-Public Use
  Company Number: US-BAUSCH-BL-2013-006169

PATIENT
  Sex: Female

DRUGS (1)
  1. PROLENSA (BROMFENAC OPHTHALMIC SOLUTION) 0.07% [Suspect]
     Indication: PRODUCT USED FOR UNKNOWN INDICATION
     Dosage: GTT; OPHTHALMIC
     Route: 047

REACTIONS (5)
  - Drug ineffective [Unknown]
  - Discomfort [Unknown]
  - Abnormal sensation in eye [Unknown]
  - Pruritus [Unknown]
  - Pain [Unknown]
